FAERS Safety Report 5345078-6 (Version None)
Quarter: 2007Q2

REPORT INFORMATION
  Report Type: 
  Country: None (occurrence: None)
  Receive Date: 20070601
  Receipt Date: 20070518
  Transmission Date: 20071010
  Serious: Yes (Other)
  Sender: FDA-Public Use
  Company Number: 156681ISR

PATIENT
  Age: 73 Year
  Sex: 0

DRUGS (1)
  1. NIFEDIPINE [Suspect]
     Indication: HYPERTENSION

REACTIONS (1)
  - PEMPHIGOID [None]
